FAERS Safety Report 9187878 (Version 2)
Quarter: 2013Q2

REPORT INFORMATION
  Report Type: Report from Study
  Country: CA (occurrence: CA)
  Receive Date: 20130325
  Receipt Date: 20130627
  Transmission Date: 20140414
  Serious: Yes (Other)
  Sender: FDA-Public Use
  Company Number: CA-ELI_LILLY_AND_COMPANY-CA201303004890

PATIENT
  Age: 71 Year
  Sex: Female

DRUGS (16)
  1. TERIPARATIDE [Suspect]
     Indication: OSTEOPOROSIS
     Dosage: 20 UG, UNK
     Route: 058
     Dates: start: 20120620
  2. TERIPARATIDE [Suspect]
     Dosage: 20 UG, QD
     Route: 058
  3. DEXASONE [Concomitant]
  4. FLORINEF [Concomitant]
  5. ROCALTROL [Concomitant]
  6. PANTOPRAZOLE [Concomitant]
  7. ELTROXIN [Concomitant]
  8. COZAAR [Concomitant]
  9. SOFLAX [Concomitant]
  10. LIPITOR [Concomitant]
  11. CALCIUM [Concomitant]
  12. MAGNESIUM [Concomitant]
  13. ZINC [Concomitant]
  14. BISOPROLOL [Concomitant]
  15. ASPIRIN [Concomitant]
     Dosage: 81 MG, UNK
  16. OXYGEN [Concomitant]
     Dosage: UNK, UNKNOWN
     Route: 065

REACTIONS (3)
  - Lung neoplasm malignant [Not Recovered/Not Resolved]
  - Drug dose omission [Unknown]
  - Fall [Recovered/Resolved]
